FAERS Safety Report 5805849-6 (Version None)
Quarter: 2008Q3

REPORT INFORMATION
  Report Type: 
  Country: None (occurrence: None)
  Receive Date: 20080709
  Receipt Date: 20080709
  Transmission Date: 20090109
  Serious: Yes (Hospitalization)
  Sender: FDA-Public Use
  Company Number: None

PATIENT
  Age: 48 Year
  Sex: Male
  Weight: 66 kg

DRUGS (2)
  1. ASPIRIN AND DIPYRIDAMOLE [Suspect]
     Indication: CEREBROVASCULAR ACCIDENT PROPHYLAXIS
     Dosage: 25/200 MG BID PO
     Route: 048
     Dates: start: 20070730, end: 20080416
  2. NAPROXEN [Suspect]
     Indication: PAIN
     Dosage: 500 MG TID PO
     Route: 048
     Dates: start: 20080310, end: 20080416

REACTIONS (5)
  - DIARRHOEA [None]
  - DIZZINESS [None]
  - GASTRIC HAEMORRHAGE [None]
  - HAEMATOCHEZIA [None]
  - PAIN [None]
